FAERS Safety Report 4782770-6 (Version None)
Quarter: 2005Q3

REPORT INFORMATION
  Report Type: 
  Country: None (occurrence: None)
  Receive Date: 20050914
  Receipt Date: 20050614
  Transmission Date: 20060218
  Serious: Yes (Hospitalization)
  Sender: FDA-Public Use
  Company Number: 163-20785-05060204

PATIENT
  Age: 61 Year
  Sex: Male

DRUGS (1)
  1. THALOMID [Suspect]
     Indication: GAMMOPATHY
     Dosage: 350 MG, DAILY, ORAL
     Route: 048
     Dates: start: 20050509

REACTIONS (1)
  - CONVULSION [None]
